FAERS Safety Report 4401657-1 (Version None)
Quarter: 2004Q3

REPORT INFORMATION
  Report Type: 
  Country: None (occurrence: None)
  Receive Date: 20040719
  Receipt Date: 20040705
  Transmission Date: 20050211
  Serious: Yes (Hospitalization)
  Sender: FDA-Public Use
  Company Number: DE-ROCHE-373393

PATIENT
  Age: 42 Year
  Sex: Female

DRUGS (3)
  1. CAPECITABINE [Suspect]
     Indication: BREAST CANCER
     Dosage: DAYS 1-14 OF A THREE WEEK CYCLE
     Route: 048
  2. NAVELBINE [Suspect]
     Indication: BREAST CANCER
     Dosage: ON DAYS ONE AND EIGHT
     Route: 042
  3. DEXAMETHASONE [Suspect]
     Route: 065

REACTIONS (2)
  - CEREBROVASCULAR ACCIDENT [None]
  - HEMIPARESIS [None]
